FAERS Safety Report 21205328 (Version 1)
Quarter: 2022Q3

REPORT INFORMATION
  Report Type: Other
  Country: GB (occurrence: GB)
  Receive Date: 20220812
  Receipt Date: 20220812
  Transmission Date: 20221026
  Serious: Yes (Other)
  Sender: FDA-Public Use
  Company Number: GB-MACLEODS PHARMA UK LTD-MAC2022036765

PATIENT

DRUGS (2)
  1. TAMSULOSIN HYDROCHLORIDE [Suspect]
     Active Substance: TAMSULOSIN HYDROCHLORIDE
     Indication: Prostatitis
     Dosage: 400 MICROGRAM (400MCG MR)
     Route: 065
     Dates: start: 20220727, end: 20220730
  2. NIZATIDINE [Concomitant]
     Active Substance: NIZATIDINE
     Indication: Dyspepsia
     Dosage: UNK
     Route: 065
     Dates: start: 20220727

REACTIONS (1)
  - Eye inflammation [Unknown]

NARRATIVE: CASE EVENT DATE: 20220731
